FAERS Safety Report 15906336 (Version 2)
Quarter: 2019Q1

REPORT INFORMATION
  Report Type: Spontaneous
  Country: IT (occurrence: IT)
  Receive Date: 20190204
  Receipt Date: 20190211
  Transmission Date: 20190417
  Serious: Yes (Other)
  Sender: FDA-Public Use
  Company Number: IT-TEVA-2019-IT-1003281

PATIENT
  Age: 67 Year
  Sex: Female

DRUGS (13)
  1. FOLINIC ACID [Suspect]
     Active Substance: LEUCOVORIN
     Indication: COLORECTAL CANCER METASTATIC
     Dosage: (FOLFOX REGIMEN; RECEIVED 11 CYCLES)
     Route: 065
     Dates: start: 201412, end: 201505
  2. IRINOTECAN [Suspect]
     Active Substance: IRINOTECAN
     Indication: COLORECTAL CANCER METASTATIC
     Dosage: (FOLFIRI REGIMEN; RECEIVED 13 CYCLES)
     Route: 065
     Dates: start: 201702, end: 201708
  3. 5-FLUOROURACIL [Suspect]
     Active Substance: FLUOROURACIL
     Dosage: (FOLFOX REGIMEN; RECEIVED 4 CYCLES)
     Route: 065
     Dates: start: 201509, end: 201511
  4. OXALIPLATIN. [Suspect]
     Active Substance: OXALIPLATIN
     Indication: COLORECTAL CANCER METASTATIC
     Dosage: (FOLFOX REGIMEN; RECEIVED 11 CYCLES)
     Route: 065
     Dates: start: 201412, end: 201505
  5. PANITUMUMAB [Suspect]
     Active Substance: PANITUMUMAB
     Dosage: (FOLFOX REGIMEN; RECEIVED 4 CYCLES)
     Route: 065
     Dates: start: 201509, end: 201511
  6. AFLIBERCEPT [Suspect]
     Active Substance: AFLIBERCEPT
     Indication: COLORECTAL CANCER METASTATIC
     Route: 065
     Dates: start: 201702, end: 201807
  7. OXALIPLATIN. [Suspect]
     Active Substance: OXALIPLATIN
     Dosage: (FOLFOX REGIMEN; RECEIVED 4 CYCLES)
     Route: 065
     Dates: start: 201509, end: 201511
  8. 5-FLUOROURACIL [Suspect]
     Active Substance: FLUOROURACIL
     Dosage: (FOLFIRI REGIMEN; RECEIVED 13 CYCLES)
     Route: 065
     Dates: start: 201702, end: 201708
  9. FOLINIC ACID [Suspect]
     Active Substance: LEUCOVORIN
     Dosage: (FOLFOX REGIMEN; RECEIVED 4 CYCLES)
     Route: 065
     Dates: start: 201509, end: 201511
  10. 5-FLUOROURACIL [Suspect]
     Active Substance: FLUOROURACIL
     Indication: COLORECTAL CANCER METASTATIC
     Dosage: (FOLFOX REGIMEN; RECEIVED 11 CYCLES)
     Route: 065
     Dates: start: 201412, end: 201505
  11. FOLINIC ACID [Suspect]
     Active Substance: LEUCOVORIN
     Dosage: (FOLFIRI REGIMEN; RECEIVED 13 CYCLES)
     Route: 065
     Dates: start: 201702, end: 201708
  12. PANITUMUMAB [Suspect]
     Active Substance: PANITUMUMAB
     Indication: COLORECTAL CANCER METASTATIC
     Dosage: (FOLFOX REGIMEN; RECEIVED 11 CYCLES)
     Route: 065
     Dates: start: 201412, end: 201505
  13. DOXYCYCLINE. [Concomitant]
     Active Substance: DOXYCYCLINE
     Indication: PROPHYLAXIS
     Route: 065

REACTIONS (5)
  - Asthenia [Unknown]
  - Diarrhoea [Unknown]
  - Neutropenia [Unknown]
  - Hypertension [Unknown]
  - Rash [Unknown]
